FAERS Safety Report 20751062 (Version 1)
Quarter: 2022Q2

REPORT INFORMATION
  Report Type: Spontaneous
  Country: CN (occurrence: CN)
  Receive Date: 20220426
  Receipt Date: 20220426
  Transmission Date: 20220720
  Serious: Yes (Hospitalization)
  Sender: FDA-Public Use
  Company Number: CN-PFIZER INC-202200597661

PATIENT
  Age: 24 Year
  Sex: Male

DRUGS (2)
  1. CELECOXIB [Suspect]
     Active Substance: CELECOXIB
     Indication: Intervertebral disc protrusion
     Dosage: 1 DF, 2X/DAY
     Route: 048
     Dates: start: 20210915, end: 20210922
  2. SULFASALAZINE [Concomitant]
     Active Substance: SULFASALAZINE
     Indication: Intervertebral disc protrusion
     Dosage: 3 DF
     Dates: start: 20210915, end: 20210922

REACTIONS (8)
  - Drug eruption [Recovering/Resolving]
  - Erythema [Recovering/Resolving]
  - Papule [Recovering/Resolving]
  - Pyrexia [Unknown]
  - Asthenia [Unknown]
  - Discomfort [Unknown]
  - Transaminases increased [Unknown]
  - Off label use [Unknown]

NARRATIVE: CASE EVENT DATE: 20210915
